FAERS Safety Report 10308131 (Version 1)
Quarter: 2014Q3

REPORT INFORMATION
  Report Type: Spontaneous
  Country: US (occurrence: US)
  Receive Date: 20140716
  Receipt Date: 20140716
  Transmission Date: 20150326
  Serious: Yes (Other)
  Sender: FDA-Public Use
  Company Number: PHHY2014US086205

PATIENT
  Age: 53 Year
  Sex: Female

DRUGS (6)
  1. MYCOPHENOLIC ACID [Suspect]
     Active Substance: MYCOPHENOLIC ACID
     Indication: IMMUNOSUPPRESSION
  2. SALICYLIC ACID [Suspect]
     Active Substance: SALICYLIC ACID
     Indication: SKIN PAPILLOMA
     Route: 061
  3. TACROLIMUS. [Suspect]
     Active Substance: TACROLIMUS
     Indication: IMMUNOSUPPRESSION
  4. PREDNISONE. [Concomitant]
     Active Substance: PREDNISONE
     Indication: IMMUNOSUPPRESSION
  5. ACITRETIN [Suspect]
     Active Substance: ACITRETIN
     Indication: SKIN PAPILLOMA
     Dosage: 25 MG, PER DAY
     Route: 048
  6. UREA. [Suspect]
     Active Substance: UREA
     Indication: SKIN PAPILLOMA
     Route: 061

REACTIONS (6)
  - Skin lesion [Recovered/Resolved]
  - Drug ineffective [Unknown]
  - Squamous cell carcinoma of skin [Unknown]
  - Disease progression [Unknown]
  - Skin papilloma [Recovered/Resolved]
  - Papilloma viral infection [Recovered/Resolved]
